FAERS Safety Report 5256761-5 (Version None)
Quarter: 2007Q1

REPORT INFORMATION
  Report Type: 
  Country: None (occurrence: None)
  Receive Date: 20070306
  Receipt Date: 20070222
  Transmission Date: 20070707
  Serious: Yes (Other)
  Sender: FDA-Public Use
  Company Number: IE-PFIZER INC-2007015602

PATIENT

DRUGS (3)
  1. LYRICA [Suspect]
     Route: 048
  2. OPIOIDS [Concomitant]
  3. AMITRIPTYLINE HCL [Concomitant]

REACTIONS (1)
  - SEROTONIN SYNDROME [None]
